FAERS Safety Report 7017783-7 (Version None)
Quarter: 2010Q3

REPORT INFORMATION
  Report Type: 
  Country: None (occurrence: None)
  Receive Date: 20100928
  Receipt Date: 20100916
  Transmission Date: 20110219
  Serious: Yes (Other)
  Sender: FDA-Public Use
  Company Number: US-ELI_LILLY_AND_COMPANY-US201009005272

PATIENT
  Sex: Male

DRUGS (3)
  1. HUMALOG [Suspect]
     Indication: TYPE 1 DIABETES MELLITUS
     Dosage: 20 U, AS NEEDED
  2. LANTUS [Concomitant]
  3. ANTIDEPRESSANTS [Concomitant]

REACTIONS (12)
  - BLOOD GLUCOSE INCREASED [None]
  - DRUG INEFFECTIVE [None]
  - FACIAL PAIN [None]
  - HEARING IMPAIRED [None]
  - NERVE COMPRESSION [None]
  - NERVOUS SYSTEM DISORDER [None]
  - PAIN [None]
  - PITUITARY TUMOUR [None]
  - SWELLING FACE [None]
  - TOOTH EXTRACTION [None]
  - URTICARIA [None]
  - VISUAL IMPAIRMENT [None]
